FAERS Safety Report 7586627-7 (Version None)
Quarter: 2011Q3

REPORT INFORMATION
  Report Type: 
  Country: None (occurrence: None)
  Receive Date: 20110701
  Receipt Date: 20110509
  Transmission Date: 20111222
  Serious: Yes (Other)
  Sender: FDA-Public Use
  Company Number: US-SANOFI-AVENTIS-2011SA041175

PATIENT
  Age: 60 Year
  Sex: Male

DRUGS (13)
  1. PLAVIX [Suspect]
     Route: 048
     Dates: start: 20110601
  2. LISINOPRIL [Concomitant]
  3. LANTUS [Concomitant]
  4. NITROSTAT [Concomitant]
  5. MULTI-VITAMINS [Concomitant]
  6. ASPIRIN [Concomitant]
  7. LIPITOR [Concomitant]
  8. PIOGLITAZONE [Concomitant]
  9. RANOLAZINE [Concomitant]
  10. GLUCOVANCE [Concomitant]
  11. PLAVIX [Suspect]
     Indication: STENT PLACEMENT
     Route: 048
     Dates: start: 20080101, end: 20110501
  12. FISH OIL [Concomitant]
  13. COREG [Concomitant]

REACTIONS (1)
  - ARTERIAL OCCLUSIVE DISEASE [None]
